FAERS Safety Report 8168972-X (Version None)
Quarter: 2012Q1

REPORT INFORMATION
  Report Type: 
  Country: None (occurrence: None)
  Receive Date: 20120227
  Receipt Date: 20120224
  Transmission Date: 20120608
  Serious: Yes (Other)
  Sender: FDA-Public Use
  Company Number: JP-PFIZER INC-2012049774

PATIENT
  Age: 76 Year
  Sex: Male

DRUGS (5)
  1. PLETAL [Concomitant]
  2. WARFARIN [Concomitant]
     Route: 048
  3. LIPITOR [Suspect]
     Dosage: 5 MG, 1X/DAY
     Route: 048
     Dates: start: 20110901
  4. CARVEDILOL [Concomitant]
  5. MAGMITT [Concomitant]

REACTIONS (1)
  - HAEMATURIA [None]
